FAERS Safety Report 12492777 (Version 1)
Quarter: 2016Q2

REPORT INFORMATION
  Report Type: Report from Study
  Country: PA (occurrence: PA)
  Receive Date: 20160623
  Receipt Date: 20160623
  Transmission Date: 20160815
  Serious: Yes (Hospitalization)
  Sender: FDA-Public Use
  Company Number: PA-ABBVIE-16P-125-1656069-00

PATIENT
  Sex: Male

DRUGS (1)
  1. PARICALCITOL. [Suspect]
     Active Substance: PARICALCITOL
     Indication: PRODUCT USED FOR UNKNOWN INDICATION
     Route: 042
     Dates: start: 20151001

REACTIONS (1)
  - Cholelithiasis [Unknown]
